FAERS Safety Report 25034124 (Version 5)
Quarter: 2025Q2

REPORT INFORMATION
  Report Type: Spontaneous
  Country: US (occurrence: None)
  Receive Date: 20250304
  Receipt Date: 20250630
  Transmission Date: 20250717
  Serious: Yes (Hospitalization)
  Sender: MDD OPERATIONS
  Company Number: US-MDD US Operations-MDD202407-002725

PATIENT
  Age: 68 Year
  Sex: Female

DRUGS (15)
  1. APOKYN [Suspect]
     Active Substance: APOMORPHINE HYDROCHLORIDE
     Indication: Parkinson^s disease
     Dates: start: 20240620
  2. APOKYN [Suspect]
     Active Substance: APOMORPHINE HYDROCHLORIDE
     Indication: On and off phenomenon
     Dates: start: 20240723
  3. APOKYN [Suspect]
     Active Substance: APOMORPHINE HYDROCHLORIDE
     Indication: Dyskinesia
     Route: 058
     Dates: start: 20240617
  4. APOKYN [Suspect]
     Active Substance: APOMORPHINE HYDROCHLORIDE
     Route: 058
  5. CARBIDOPA\LEVODOPA [Concomitant]
     Active Substance: CARBIDOPA\LEVODOPA
  6. VITAMIN D2 [Concomitant]
     Active Substance: ERGOCALCIFEROL
  7. VITAMIN B12 [Concomitant]
     Active Substance: CYANOCOBALAMIN
  8. ZOLOFT [Concomitant]
     Active Substance: SERTRALINE HYDROCHLORIDE
  9. LOSARTAN POTASSIUM [Concomitant]
     Active Substance: LOSARTAN POTASSIUM
  10. ZETIA [Concomitant]
     Active Substance: EZETIMIBE
  11. METFORMIN [Concomitant]
     Active Substance: METFORMIN HYDROCHLORIDE
     Indication: Gastrointestinal disorder
  12. LINZESS [Concomitant]
     Active Substance: LINACLOTIDE
  13. ATORVASTATIN CALCIUM [Concomitant]
     Active Substance: ATORVASTATIN CALCIUM
  14. CREXONT [Concomitant]
     Active Substance: CARBIDOPA\LEVODOPA
  15. CREXONT [Concomitant]
     Active Substance: CARBIDOPA\LEVODOPA

REACTIONS (14)
  - Fluid retention [Unknown]
  - Renal disorder [Unknown]
  - Gastrointestinal disorder [Unknown]
  - Herpes zoster [Unknown]
  - Balance disorder [Unknown]
  - Decreased appetite [Unknown]
  - Weight decreased [Unknown]
  - Back injury [Unknown]
  - Pain [Unknown]
  - Back pain [Not Recovered/Not Resolved]
  - Emergency care [Unknown]
  - Arthralgia [Unknown]
  - Fatigue [Unknown]
  - Arthralgia [Unknown]

NARRATIVE: CASE EVENT DATE: 20240723
